FAERS Safety Report 8587260 (Version 4)
Quarter: 2013Q4

REPORT INFORMATION
  Report Type: Spontaneous
  Country: FR (occurrence: FR)
  Receive Date: 20120530
  Receipt Date: 20131105
  Transmission Date: 20140711
  Serious: Yes (Other)
  Sender: FDA-Public Use
  Company Number: FR-009507513-1205FRA00093

PATIENT
  Age: 68 Year
  Sex: Male
  Weight: 88 kg

DRUGS (11)
  1. ISENTRESS [Suspect]
     Indication: HIV INFECTION
     Dosage: 600 MG, QD
     Route: 048
     Dates: start: 20120103, end: 20120423
  2. TELAPREVIR [Suspect]
     Indication: HEPATITIS C
     Dosage: 375 X 6
     Route: 048
     Dates: start: 20120212, end: 20120425
  3. PEGASYS [Suspect]
     Indication: HEPATITIS C
     Dosage: 180 ?G, QW
     Route: 058
     Dates: start: 20120212, end: 20120425
  4. COPEGUS [Suspect]
     Indication: HEPATITIS C
     Dosage: 1200 MG, QD
     Route: 048
     Dates: start: 20120212, end: 20120425
  5. NORVIR [Suspect]
     Indication: HIV INFECTION
     Dosage: 100 MG, QD
     Dates: start: 20120103, end: 20120423
  6. REYATAZ [Suspect]
     Indication: HIV INFECTION
     Dosage: 300 MG, QD
     Dates: start: 20120103
  7. INEXIUM [Concomitant]
     Dosage: 20 MG, QD
  8. CO-RENITEC [Concomitant]
     Dosage: 1 UNK, UNK
  9. LEVOTHYROXINE SODIUM [Concomitant]
     Dosage: 125 MICROGRAM, QD
  10. GABAPENTIN [Concomitant]
     Dosage: 100 MG, UNK
  11. UVEDOSE [Concomitant]

REACTIONS (8)
  - Rash generalised [Recovered/Resolved]
  - Pruritus [Recovered/Resolved]
  - Nausea [Recovered/Resolved]
  - Decreased appetite [Recovered/Resolved]
  - Vertigo [Recovered/Resolved]
  - Dyspnoea exertional [Recovered/Resolved]
  - Fatigue [Recovered/Resolved]
  - Anaemia [Recovered/Resolved]
